FAERS Safety Report 16079686 (Version 1)
Quarter: 2019Q1

REPORT INFORMATION
  Report Type: Spontaneous
  Country: MX (occurrence: MX)
  Receive Date: 20190315
  Receipt Date: 20190315
  Transmission Date: 20190418
  Serious: Yes (Other)
  Sender: FDA-Public Use
  Company Number: MX-009507513-1903MEX005591

PATIENT
  Age: 41 Year
  Sex: Female

DRUGS (1)
  1. ZERBAXA [Suspect]
     Active Substance: CEFTOLOZANE SULFATE\TAZOBACTAM SODIUM
     Indication: URINARY TRACT INFECTION
     Dosage: UNK
     Dates: start: 20190304, end: 201903

REACTIONS (1)
  - Phosphorus metabolism disorder [Recovered/Resolved]

NARRATIVE: CASE EVENT DATE: 20190304
